FAERS Safety Report 25307613 (Version 1)
Quarter: 2025Q2

REPORT INFORMATION
  Report Type: Spontaneous
  Country: CN (occurrence: CN)
  Receive Date: 20250513
  Receipt Date: 20250513
  Transmission Date: 20250716
  Serious: Yes (Life-Threatening, Hospitalization)
  Sender: NOVARTIS
  Company Number: CN-002147023-NVSC2025CN076950

PATIENT
  Age: 29 Year
  Sex: Male

DRUGS (3)
  1. CYCLOSPORINE [Suspect]
     Active Substance: CYCLOSPORINE
     Indication: Immunosuppressant drug therapy
     Route: 065
     Dates: start: 2022
  2. HEPARIN [Concomitant]
     Active Substance: HEPARIN SODIUM
     Indication: Anticoagulant therapy
     Route: 065
     Dates: start: 202207, end: 202208
  3. FLUVASTATIN [Concomitant]
     Active Substance: FLUVASTATIN SODIUM
     Indication: Nephrotic syndrome
     Route: 065
     Dates: start: 2022

REACTIONS (10)
  - Nocardiosis [Recovered/Resolved]
  - Traumatic haemothorax [Recovered/Resolved]
  - Pneumonia bacterial [Recovered/Resolved]
  - Pneumonia klebsiella [Recovered/Resolved]
  - Acinetobacter infection [Recovered/Resolved]
  - Respiratory failure [Recovered/Resolved]
  - Nocardia sepsis [Recovered/Resolved]
  - Septic shock [Recovered/Resolved]
  - Renal impairment [Recovered/Resolved]
  - Multiple organ dysfunction syndrome [Recovered/Resolved]

NARRATIVE: CASE EVENT DATE: 20220701
